FAERS Safety Report 16659825 (Version 2)
Quarter: 2019Q3

REPORT INFORMATION
  Report Type: Spontaneous
  Country: ES (occurrence: ES)
  Receive Date: 20190802
  Receipt Date: 20190901
  Transmission Date: 20191004
  Serious: Yes (Other)
  Sender: FDA-Public Use
  Company Number: ES-009507513-1907ESP013624

PATIENT
  Age: 60 Year
  Sex: Male
  Weight: 71 kg

DRUGS (4)
  1. SIMVASTATIN. [Suspect]
     Active Substance: SIMVASTATIN
     Indication: MYOCARDIAL ISCHAEMIA
     Dosage: UNK
     Dates: start: 20181228, end: 20190116
  2. ROSUVASTATIN. [Suspect]
     Active Substance: ROSUVASTATIN
     Indication: MYOCARDIAL ISCHAEMIA
     Dosage: UNK
     Route: 048
     Dates: start: 20180116, end: 20181228
  3. ROSUVASTATIN. [Suspect]
     Active Substance: ROSUVASTATIN
     Indication: MYOCARDIAL ISCHAEMIA
     Dosage: UNK
     Route: 048
     Dates: start: 20190116
  4. ADIRO [Concomitant]
     Active Substance: ASPIRIN
     Dosage: UNK, 30 TABLETS (POLYPROPYLENE-ALUMINIUM)

REACTIONS (3)
  - Cerebellar ataxia [Not Recovered/Not Resolved]
  - Cerebellar atrophy [Not Recovered/Not Resolved]
  - Gait disturbance [Not Recovered/Not Resolved]

NARRATIVE: CASE EVENT DATE: 20181101
